FAERS Safety Report 10265685 (Version 1)
Quarter: 2014Q2

REPORT INFORMATION
  Report Type: Spontaneous
  Country: US (occurrence: US)
  Receive Date: 20140627
  Receipt Date: 20140627
  Transmission Date: 20141212
  Serious: Yes (Other)
  Sender: FDA-Public Use
  Company Number: CHPA2014US008739

PATIENT
  Age: 52 Year
  Sex: Male

DRUGS (2)
  1. KERI ORIGINAL [Suspect]
     Indication: DRY SKIN
     Dosage: UNK
     Route: 061
     Dates: start: 20130625
  2. KERI SHEA BUTTER [Suspect]
     Dosage: UNK
     Dates: start: 20140624, end: 20140624

REACTIONS (6)
  - Rash erythematous [Not Recovered/Not Resolved]
  - Eye swelling [Not Recovered/Not Resolved]
  - Erythema [Not Recovered/Not Resolved]
  - Rash generalised [Not Recovered/Not Resolved]
  - Eczema [Not Recovered/Not Resolved]
  - Pain of skin [Not Recovered/Not Resolved]
